FAERS Safety Report 8542213-3 (Version None)
Quarter: 2012Q3

REPORT INFORMATION
  Report Type: 
  Country: None (occurrence: None)
  Receive Date: 20120726
  Receipt Date: 20111011
  Transmission Date: 20120928
  Serious: No
  Sender: FDA-Public Use
  Company Number: US-ASTRAZENECA-2011SE61122

PATIENT
  Age: 34 Year
  Sex: Female
  Weight: 92.1 kg

DRUGS (4)
  1. WELLBUTRIN [Concomitant]
  2. SEROQUEL XR [Suspect]
     Indication: DEPRESSION
     Route: 048
     Dates: start: 20110912
  3. DEPLIN [Concomitant]
  4. FLUDOXANINE [Concomitant]

REACTIONS (6)
  - DRY MOUTH [None]
  - ABNORMAL DREAMS [None]
  - PAIN [None]
  - DYSSTASIA [None]
  - MUSCLE TIGHTNESS [None]
  - GAIT DISTURBANCE [None]
